FAERS Safety Report 4863694-2 (Version None)
Quarter: 2005Q4

REPORT INFORMATION
  Report Type: 
  Country: None (occurrence: None)
  Receive Date: 20051222
  Receipt Date: 20051014
  Transmission Date: 20060501
  Serious: No
  Sender: FDA-Public Use
  Company Number: US-GLAXOSMITHKLINE-A0578287A

PATIENT
  Age: 34 Year
  Sex: Female

DRUGS (3)
  1. FLOVENT [Suspect]
     Indication: ASTHMA
     Dosage: 4PUFF SINGLE DOSE
     Route: 055
     Dates: start: 20050301, end: 20050301
  2. SINGULAIR [Concomitant]
  3. PREVACID [Concomitant]

REACTIONS (5)
  - CHEST DISCOMFORT [None]
  - COUGH [None]
  - DYSPNOEA [None]
  - RETCHING [None]
  - VOMITING [None]
